FAERS Safety Report 17293461 (Version 1)
Quarter: 2020Q1

REPORT INFORMATION
  Report Type: Spontaneous
  Country: GB (occurrence: GB)
  Receive Date: 20200121
  Receipt Date: 20200121
  Transmission Date: 20200409
  Serious: Yes (Hospitalization)
  Sender: FDA-Public Use
  Company Number: NVSC2020GB010138

PATIENT
  Age: 78 Year
  Sex: Female

DRUGS (7)
  1. OMEPRAZOLE. [Suspect]
     Active Substance: OMEPRAZOLE
     Indication: PRODUCT USED FOR UNKNOWN INDICATION
     Dosage: 40 MG, QD
     Route: 048
     Dates: end: 20180523
  2. AMITRIPTYLINE [Suspect]
     Active Substance: AMITRIPTYLINE
     Indication: PRODUCT USED FOR UNKNOWN INDICATION
     Dosage: 10 MG, QN (STARTED 5 WEEKS AGO AND TITRATED FROM 10MG AT NIGHT TO 30MG AT NIGHT BY 10MG EVERY 2 WEEK
     Route: 048
     Dates: start: 20180418, end: 20180502
  3. AMITRIPTYLINE [Suspect]
     Active Substance: AMITRIPTYLINE
     Dosage: 20 MG, QN (STARTED 5 WEEKS AGO AND TITRATED FROM 10MG AT NIGHT TO 30MG AT NIGHT BY 10MG EVERY 2 WEEK
     Route: 048
     Dates: start: 20180502, end: 20180516
  4. SERTRALINE [Suspect]
     Active Substance: SERTRALINE HYDROCHLORIDE
     Indication: PRODUCT USED FOR UNKNOWN INDICATION
     Dosage: 50 MG, QD (IN THE MORNING)
     Route: 048
     Dates: end: 20180521
  5. LOSARTAN. [Suspect]
     Active Substance: LOSARTAN
     Indication: HYPERTENSION
     Dosage: 50 MG, QD (IN THE MORNING)
     Route: 048
     Dates: end: 20180523
  6. AMITRIPTYLINE [Suspect]
     Active Substance: AMITRIPTYLINE
     Dosage: 30 MG, QN (STARTED 5 WEEKS AGO AND TITRATED FROM 10MG AT NIGHT TO 30MG AT NIGHT BY 10MG EVERY 2 WEEK
     Route: 048
     Dates: start: 20180516, end: 20180523
  7. HYDROXOCOBALAMIN [Concomitant]
     Active Substance: HYDROXOCOBALAMIN
     Indication: PRODUCT USED FOR UNKNOWN INDICATION
     Dosage: 1 MG/ML, UNKNOWN
     Route: 065

REACTIONS (3)
  - Confusional state [Unknown]
  - Hyponatraemia [Recovered/Resolved]
  - Dry mouth [Recovered/Resolved]

NARRATIVE: CASE EVENT DATE: 20180522
